FAERS Safety Report 16588017 (Version 1)
Quarter: 2019Q3

REPORT INFORMATION
  Report Type: Spontaneous
  Country: US (occurrence: US)
  Receive Date: 20190717
  Receipt Date: 20190717
  Transmission Date: 20191004
  Serious: No
  Sender: FDA-Public Use
  Company Number: US-MYLANLABS-2019M1062242

PATIENT
  Age: 55 Year
  Sex: Female
  Weight: 50 kg

DRUGS (1)
  1. LIDOCAINE PATCH [Suspect]
     Active Substance: LIDOCAINE
     Indication: HYPOTONIA
     Dosage: UNK
     Route: 003
     Dates: start: 20190629, end: 20190701

REACTIONS (4)
  - Off label use [Recovered/Resolved]
  - Product quality issue [Unknown]
  - Wrong technique in product usage process [Unknown]
  - Product adhesion issue [Unknown]

NARRATIVE: CASE EVENT DATE: 20190629
